FAERS Safety Report 7430934-5 (Version None)
Quarter: 2011Q2

REPORT INFORMATION
  Report Type: 
  Country: None (occurrence: None)
  Receive Date: 20110421
  Receipt Date: 20110419
  Transmission Date: 20111010
  Serious: Yes (Death)
  Sender: FDA-Public Use
  Company Number: PHHY2011US31707

PATIENT
  Age: 33 Year
  Sex: Male

DRUGS (2)
  1. TOBI [Suspect]
     Dosage: 300 MG, BID
     Dates: start: 20110207, end: 20110306
  2. ANTIARRHYTHMICS, CLASS I AND III [Concomitant]

REACTIONS (2)
  - NEOPLASM MALIGNANT [None]
  - PNEUMONIA ASPIRATION [None]
